FAERS Safety Report 22062092 (Version 1)
Quarter: 2023Q1

REPORT INFORMATION
  Report Type: Spontaneous
  Country: CN (occurrence: CN)
  Receive Date: 20230304
  Receipt Date: 20230304
  Transmission Date: 20230418
  Serious: Yes (Hospitalization, Other)
  Sender: FDA-Public Use
  Company Number: CN-UNITED THERAPEUTICS-UNT-2023-005531

PATIENT
  Age: 24 Year
  Sex: Female

DRUGS (3)
  1. REMODULIN [Suspect]
     Active Substance: TREPROSTINIL
     Indication: Right-to-left cardiac shunt
     Dosage: UNK, CONTINUING
     Route: 041
  2. TADALAFIL [Suspect]
     Active Substance: TADALAFIL
     Indication: Right-to-left cardiac shunt
     Dosage: UNK
     Route: 048
  3. OXYGEN [Concomitant]
     Active Substance: OXYGEN
     Indication: Supportive care
     Dosage: UNK

REACTIONS (4)
  - Haemoptysis [Recovered/Resolved]
  - Cardiac failure [Recovered/Resolved]
  - Stillbirth [Recovered/Resolved]
  - Maternal exposure during pregnancy [Recovered/Resolved]
